FAERS Safety Report 12225140 (Version 1)
Quarter: 2016Q1

REPORT INFORMATION
  Report Type: Spontaneous
  Country: IT (occurrence: IT)
  Receive Date: 20160331
  Receipt Date: 20160331
  Transmission Date: 20160526
  Serious: Yes (Other)
  Sender: FDA-Public Use
  Company Number: IT-MDT-ADR-2016-00486

PATIENT

DRUGS (1)
  1. BACLOFEN, UNKNOWN [Suspect]
     Active Substance: BACLOFEN
     Indication: MUSCLE SPASTICITY
     Dosage: 100 MCG/DAY
     Route: 037

REACTIONS (4)
  - Implant site extravasation [Not Recovered/Not Resolved]
  - No therapeutic response [Not Recovered/Not Resolved]
  - Cerebrospinal fistula [Not Recovered/Not Resolved]
  - Muscle spasticity [Not Recovered/Not Resolved]

NARRATIVE: CASE EVENT DATE: 20160120
